FAERS Safety Report 7101661-9 (Version None)
Quarter: 2010Q4

REPORT INFORMATION
  Report Type: 
  Country: None (occurrence: None)
  Receive Date: 20101115
  Receipt Date: 20101101
  Transmission Date: 20110411
  Serious: Yes (Hospitalization)
  Sender: FDA-Public Use
  Company Number: US-BAYER-201027418NA

PATIENT
  Age: 48 Year
  Sex: Female
  Weight: 61 kg

DRUGS (4)
  1. YAZ [Suspect]
     Indication: PRODUCT USED FOR UNKNOWN INDICATION
     Route: 048
  2. YASMIN [Suspect]
     Indication: CONTRACEPTION
     Route: 048
     Dates: start: 20050101, end: 20100101
  3. OCELLA [Suspect]
     Indication: CONTRACEPTION
     Dates: start: 20050101, end: 20100101
  4. MOTRIN [Concomitant]
     Dosage: TWICE A MONTH

REACTIONS (1)
  - CHOLECYSTECTOMY [None]
